FAERS Safety Report 6961585-4 (Version None)
Quarter: 2010Q3

REPORT INFORMATION
  Report Type: 
  Country: None (occurrence: None)
  Receive Date: 20100901
  Receipt Date: 20100819
  Transmission Date: 20110219
  Serious: Yes (Other)
  Sender: FDA-Public Use
  Company Number: NZ-MYLANLABS-2010S1015081

PATIENT
  Sex: Female

DRUGS (1)
  1. FELODIPINE [Suspect]
     Indication: BLOOD PRESSURE INCREASED
     Route: 048

REACTIONS (2)
  - GAIT DISTURBANCE [None]
  - PRURITUS [None]
